FAERS Safety Report 16660178 (Version 2)
Quarter: 2019Q3

REPORT INFORMATION
  Report Type: Report from Study
  Country: CN (occurrence: CN)
  Receive Date: 20190802
  Receipt Date: 20190819
  Transmission Date: 20191004
  Serious: Yes (Other)
  Sender: FDA-Public Use
  Company Number: CN-AUROBINDO-AUR-APL-2019-045770

PATIENT

DRUGS (3)
  1. MELPHALAN INJECTION [Suspect]
     Active Substance: MELPHALAN
     Dosage: 40 MICROGRAM (LEFT EYE)
  2. MELPHALAN INJECTION [Suspect]
     Active Substance: MELPHALAN
     Indication: RETINOBLASTOMA
     Dosage: 1 MILLILITER (20-40) MICROGRAM
  3. ATROPINE. [Concomitant]
     Active Substance: ATROPINE
     Indication: MYDRIASIS
     Dosage: UNK
     Route: 065

REACTIONS (6)
  - Product use issue [Unknown]
  - Chorioretinal atrophy [Unknown]
  - Off label use [Unknown]
  - Retinal vasculitis [Unknown]
  - Retinal pigmentation [Unknown]
  - Vascular occlusion [Unknown]
